FAERS Safety Report 10247099 (Version 3)
Quarter: 2020Q1

REPORT INFORMATION
  Report Type: Spontaneous
  Country: IT (occurrence: IT)
  Receive Date: 20140619
  Receipt Date: 20200108
  Transmission Date: 20200409
  Serious: Yes (Hospitalization)
  Sender: FDA-Public Use
  Company Number: IT-TEVA-488352ISR

PATIENT
  Age: 80 Year
  Sex: Female

DRUGS (25)
  1. CONTRAMAL 100 MG/ML [Suspect]
     Active Substance: TRAMADOL HYDROCHLORIDE
     Dosage: 20 GTT DAILY;
     Route: 048
     Dates: start: 20140409, end: 20140427
  2. LEVOFLOXACINA KABI [Suspect]
     Active Substance: LEVOFLOXACIN
     Indication: PNEUMONIA BACTERIAL
     Route: 042
     Dates: start: 20140409, end: 20140429
  3. XAGRID 0.5 MG [Concomitant]
     Indication: MYELOPROLIFERATIVE NEOPLASM
     Dosage: .5 MILLIGRAM DAILY;
     Route: 048
  4. SEREVENT 25 MCG [Concomitant]
     Indication: ASTHMA
     Dosage: 4 DOSAGE FORMS DAILY;
     Route: 055
  5. LASIX [Concomitant]
     Active Substance: FUROSEMIDE
     Dosage: 1 DOSAGE FORMS DAILY;
     Route: 030
  6. KANRENOL [Suspect]
     Active Substance: CANRENOATE POTASSIUM
     Dosage: 1 DOSAGE FORMS DAILY;
     Dates: start: 20140512, end: 20140525
  7. TAZOCIN 2 G + 0.250 G/4 ML [Suspect]
     Active Substance: PIPERACILLIN SODIUM\TAZOBACTAM SODIUM
     Indication: PNEUMONIA BACTERIAL
     Dosage: 9 GRAM DAILY; POWDER AND SOLVENT FOR SOLUTION FOR INJECTION
     Route: 030
     Dates: start: 20140408, end: 20140428
  8. TIKLID 250 MG [Suspect]
     Active Substance: TICLOPIDINE HYDROCHLORIDE
     Dosage: 2 DOSAGE FORMS DAILY;
     Route: 048
     Dates: start: 20140409, end: 20140429
  9. ATEM [Suspect]
     Active Substance: IPRATROPIUM BROMIDE
     Route: 055
     Dates: start: 20140412, end: 20140516
  10. BRONCOVALEAS [Suspect]
     Active Substance: ALBUTEROL
     Dosage: 7 GTT DAILY;
     Route: 055
     Dates: start: 20140412, end: 20140516
  11. TAVOR (LORAZEPAM) [Concomitant]
     Active Substance: LORAZEPAM
     Indication: INSOMNIA
     Dosage: 2.5 MILLIGRAM DAILY;
     Route: 048
  12. CLEXANE 4000 IU AXA [Suspect]
     Active Substance: ENOXAPARIN SODIUM
     Indication: THROMBOSIS PROPHYLAXIS
     Dosage: 4000 IU (INTERNATIONAL UNIT) DAILY;
     Route: 058
     Dates: start: 20140417, end: 20140418
  13. INVANZ 1 G [Suspect]
     Active Substance: ERTAPENEM SODIUM
     Indication: PNEUMONIA BACTERIAL
     Dosage: 1 GRAM DAILY; CONCENTRATE FOR SOLUTION FOR INTRAVENOUS INFUSION
     Route: 042
  14. IOMERON [Suspect]
     Active Substance: IOMEPROL
     Indication: IMAGING PROCEDURE
     Dosage: 30 ML DAILY;
     Route: 042
  15. FOLINA [Concomitant]
     Route: 048
  16. VANCOMICINA HIKMA [Suspect]
     Active Substance: VANCOMYCIN HYDROCHLORIDE
     Indication: PNEUMONIA BACTERIAL
     Dosage: 2 GRAM DAILY;
     Route: 042
  17. ACETILCISTEINA [Suspect]
     Active Substance: ACETYLCYSTEINE
     Dosage: 1800 MILLIGRAM DAILY;
     Dates: start: 20140514, end: 20140515
  18. CETIRIZINA TEVA 10MG [Suspect]
     Active Substance: CETIRIZINE HYDROCHLORIDE
     Dosage: 10 MILLIGRAM DAILY;
     Route: 048
  19. ACICLIN 400 MG [Suspect]
     Active Substance: ACYCLOVIR
     Indication: GENITAL HERPES
     Dosage: 1200 MILLIGRAM DAILY;
     Route: 048
  20. AIRCORT [Concomitant]
     Route: 055
  21. CALCIPARINA [Suspect]
     Active Substance: HEPARIN CALCIUM
     Indication: DEEP VEIN THROMBOSIS
     Dosage: .6 ML DAILY;
     Route: 058
     Dates: start: 20140513, end: 20140605
  22. MOVICOL [Suspect]
     Active Substance: POLYETHYLENE GLYCOL 3350\POTASSIUM CHLORIDE\SODIUM BICARBONATE\SODIUM CHLORIDE
     Dosage: 2 DOSAGE FORMS DAILY;
     Dates: start: 20140513, end: 20140519
  23. CLENIL [Suspect]
     Active Substance: BECLOMETHASONE DIPROPIONATE
     Route: 055
     Dates: start: 20140412, end: 20140516
  24. OMEPRAZOLO [Concomitant]
     Active Substance: OMEPRAZOLE
     Dosage: 40 MILLIGRAM DAILY;
     Route: 048
  25. ZETA COLEST [Concomitant]
     Route: 048

REACTIONS (4)
  - Drug reaction with eosinophilia and systemic symptoms [Recovering/Resolving]
  - Haematidrosis [Recovering/Resolving]
  - Generalised oedema [Recovering/Resolving]
  - Skin exfoliation [Recovering/Resolving]

NARRATIVE: CASE EVENT DATE: 20140418
